FAERS Safety Report 18784030 (Version 1)
Quarter: 2021Q1

REPORT INFORMATION
  Report Type: Spontaneous
  Country: US (occurrence: US)
  Receive Date: 20210125
  Receipt Date: 20210125
  Transmission Date: 20210419
  Serious: No
  Sender: FDA-Public Use
  Company Number: US-PERRIGO-19US016118

PATIENT
  Age: 66 Year
  Sex: Male

DRUGS (1)
  1. CALCIPOTRIENE AND BETAMETHASONE DIPROPIONATE [Suspect]
     Active Substance: BETAMETHASONE DIPROPIONATE\CALCIPOTRIENE
     Indication: PAIN
     Dosage: UNKNOWN, UNKNOWN
     Route: 061
     Dates: start: 201912

REACTIONS (1)
  - Drug effective for unapproved indication [Unknown]

NARRATIVE: CASE EVENT DATE: 201912
